FAERS Safety Report 4803701-6 (Version None)
Quarter: 2005Q4

REPORT INFORMATION
  Report Type: 
  Country: None (occurrence: None)
  Receive Date: 20051014
  Receipt Date: 20051003
  Transmission Date: 20060501
  Serious: Yes (Other)
  Sender: FDA-Public Use
  Company Number: 2005137120

PATIENT
  Age: 27 Year
  Sex: Female
  Weight: 65 kg

DRUGS (2)
  1. DEPO-PROVERA [Suspect]
     Indication: CONTRACEPTION
     Dosage: 150 MG (150 MG, SINGLE DOSE), INTRAMUSCULAR
     Route: 030
     Dates: start: 20050830, end: 20050830
  2. DRICLOR (ALUMINIUM HYDROXIDE) [Concomitant]

REACTIONS (3)
  - DIZZINESS [None]
  - MALAISE [None]
  - MENORRHAGIA [None]
